FAERS Safety Report 16625287 (Version 1)
Quarter: 2019Q3

REPORT INFORMATION
  Report Type: Spontaneous
  Country: US (occurrence: US)
  Receive Date: 20190724
  Receipt Date: 20190724
  Transmission Date: 20191004
  Serious: Yes (Other)
  Sender: FDA-Public Use
  Company Number: None

PATIENT
  Age: 65 Year
  Sex: Female
  Weight: 65.25 kg

DRUGS (1)
  1. NANO TEARS MXP FORTE CLEAR EMOLLIENT LUBRICANT [Suspect]
     Active Substance: POLYETHYLENE GLYCOL 400\PROPYLENE GLYCOL
     Indication: DRY EYE
     Route: 047
     Dates: start: 20180601, end: 20190601

REACTIONS (3)
  - Eye infection [None]
  - Suspected product contamination [None]
  - Recalled product administered [None]

NARRATIVE: CASE EVENT DATE: 20190605
